FAERS Safety Report 9556397 (Version 1)
Quarter: 2013Q3

REPORT INFORMATION
  Report Type: Spontaneous
  Country: IT (occurrence: None)
  Receive Date: 20130819
  Receipt Date: 20130819
  Transmission Date: 20140515
  Serious: Yes (Hospitalization)
  Sender: FDA-Public Use
  Company Number: 12IT005604

PATIENT
  Age: 86 Year
  Sex: Female

DRUGS (4)
  1. PAROXETINE [Suspect]
     Indication: PRODUCT USED FOR UNKNOWN INDICATION
     Route: 048
     Dates: start: 20120709, end: 20120709
  2. LEXOTAN [Suspect]
     Indication: PRODUCT USED FOR UNKNOWN INDICATION
     Dosage: 35 DROPS( (2.5MG/ML)
     Route: 048
     Dates: start: 20120709, end: 20120709
  3. OMEPRZEN (OMEPRAZOLE) [Concomitant]
  4. TOTALIP (ATORVASTATIN CALCIUM) [Concomitant]

REACTIONS (1)
  - Abdominal pain upper [None]
